FAERS Safety Report 4364399-7 (Version None)
Quarter: 2004Q2

REPORT INFORMATION
  Report Type: 
  Country: None (occurrence: None)
  Receive Date: 20040521
  Receipt Date: 20040516
  Transmission Date: 20050107
  Serious: Yes (Death)
  Sender: FDA-Public Use
  Company Number: 2004S1001166

PATIENT
  Age: 49 Year
  Sex: Female

DRUGS (11)
  1. CLOZAPINE [Suspect]
     Indication: PSYCHOTIC DISORDER
     Dosage: 25MG Q HS, ORAL
     Route: 048
     Dates: start: 20040105, end: 20040328
  2. CLOZAPINE [Suspect]
     Indication: SCHIZOPHRENIA
     Dosage: 25MG Q HS, ORAL
     Route: 048
     Dates: start: 20040105, end: 20040328
  3. CLOZAPINE [Suspect]
     Indication: THERAPY NON-RESPONDER
     Dosage: 25MG Q HS, ORAL
     Route: 048
     Dates: start: 20040105, end: 20040328
  4. FUROSEMIDE [Concomitant]
  5. POTASSIUM CHLORIDE [Concomitant]
  6. OLANZAPINE [Concomitant]
  7. ENALAPRIL [Concomitant]
  8. GABAPENTIN [Concomitant]
  9. CLONAZEPAM [Concomitant]
  10. LANSOPRAZOLE [Concomitant]
  11. CITALOPRAM [Concomitant]

REACTIONS (1)
  - DEATH [None]
